FAERS Safety Report 5495450-9 (Version None)
Quarter: 2007Q4

REPORT INFORMATION
  Report Type: 
  Country: None (occurrence: None)
  Receive Date: 20071023
  Receipt Date: 20071010
  Transmission Date: 20080405
  Serious: Yes (Hospitalization)
  Sender: FDA-Public Use
  Company Number: 238735K07USA

PATIENT
  Age: 44 Year
  Sex: Male

DRUGS (5)
  1. REBIF [Suspect]
     Indication: MULTIPLE SCLEROSIS
     Dosage: 44 MCG, 3 IN 1 WEEKS, SUBCUTANEOUS
     Route: 058
     Dates: start: 20070606
  2. PROVIGIL [Concomitant]
  3. STEROIDS (CORTICOSTEROID NOS) [Concomitant]
  4. ZONEGRAN [Concomitant]
  5. KEPPRA [Concomitant]

REACTIONS (2)
  - CONVULSION [None]
  - UNRESPONSIVE TO STIMULI [None]
